FAERS Safety Report 11225514 (Version 1)
Quarter: 2015Q2

REPORT INFORMATION
  Report Type: Spontaneous
  Country: None (occurrence: None)
  Receive Date: 20150626
  Receipt Date: 20150626
  Transmission Date: 20150821
  Serious: Yes (Life-Threatening, Hospitalization)
  Sender: FDA-Public Use
  Company Number: None

PATIENT
  Age: 84 Year
  Sex: Female
  Weight: 56 kg

DRUGS (5)
  1. SULINDAC. [Concomitant]
     Active Substance: SULINDAC
  2. MAXZIDE [Concomitant]
     Active Substance: HYDROCHLOROTHIAZIDE\TRIAMTERENE
  3. WARFARIN [Suspect]
     Active Substance: WARFARIN
     Indication: ATRIAL FIBRILLATION
     Route: 048
  4. DIGOXIN. [Concomitant]
     Active Substance: DIGOXIN
  5. WARFARIN [Suspect]
     Active Substance: WARFARIN
     Indication: PULMONARY EMBOLISM
     Route: 048

REACTIONS (4)
  - Haematochezia [None]
  - Abdominal distension [None]
  - International normalised ratio increased [None]
  - Diarrhoea [None]

NARRATIVE: CASE EVENT DATE: 20140616
